FAERS Safety Report 9853879 (Version 1)
Quarter: 2014Q1

REPORT INFORMATION
  Report Type: Spontaneous
  Country: GB (occurrence: GB)
  Receive Date: 20140129
  Receipt Date: 20140129
  Transmission Date: 20141002
  Serious: Yes (Other)
  Sender: FDA-Public Use
  Company Number: GB-WATSON-2014-00832

PATIENT
  Age: 59 Year
  Sex: Female
  Weight: 61 kg

DRUGS (3)
  1. TAMOXIFEN (UNKNOWN) [Suspect]
     Indication: PRODUCT USED FOR UNKNOWN INDICATION
     Dosage: UNK
     Route: 065
  2. ARIMIDEX [Suspect]
     Indication: INTRADUCTAL PROLIFERATIVE BREAST LESION
     Dosage: UNK
     Route: 048
     Dates: start: 200405, end: 200406
  3. INFLUENZA VIRUS [Concomitant]
     Indication: INFLUENZA IMMUNISATION
     Dosage: UNK; STOPPED
     Route: 065

REACTIONS (4)
  - Bone pain [Recovered/Resolved]
  - Muscular weakness [Not Recovered/Not Resolved]
  - Pain [Recovered/Resolved]
  - Immune system disorder [Not Recovered/Not Resolved]
